FAERS Safety Report 20057251 (Version 1)
Quarter: 2021Q4

REPORT INFORMATION
  Report Type: Spontaneous
  Country: DE (occurrence: DE)
  Receive Date: 20211111
  Receipt Date: 20211111
  Transmission Date: 20220304
  Serious: Yes (Life-Threatening, Hospitalization, Other)
  Sender: FDA-Public Use
  Company Number: DE-MYLANLABS-2021M1081742

PATIENT
  Age: 80 Year
  Sex: Female

DRUGS (11)
  1. CLOZAPINE [Suspect]
     Active Substance: CLOZAPINE
     Indication: Product used for unknown indication
     Dosage: 75 MG, SINGLE DOSE
     Route: 065
  2. CLOPIDOGREL                        /01220704/ [Concomitant]
     Indication: Peripheral arterial occlusive disease
     Dosage: 75 MILLIGRAM, QD
  3. CLOPIDOGREL                        /01220704/ [Concomitant]
     Indication: Atrial fibrillation
  4. RAMIPRIL [Concomitant]
     Active Substance: RAMIPRIL
     Indication: Hypertension
     Dosage: 5 MILLIGRAM, QD
  5. AMLODIPINE                         /00972402/ [Concomitant]
     Indication: Hypertension
     Dosage: 5 MILLIGRAM, BID
     Route: 065
  6. METOPROLOL [Concomitant]
     Active Substance: METOPROLOL
     Indication: Hypertension
     Dosage: 47.5 MILLIGRAM, QD
  7. URAPIDIL [Concomitant]
     Active Substance: URAPIDIL
     Indication: Hypertension
     Dosage: 30 MILLIGRAM, BID
  8. METFORMIN                          /00082702/ [Concomitant]
     Indication: Type 2 diabetes mellitus
     Dosage: 1000 MILLIGRAM, BID
  9. SIMVASTATIN [Concomitant]
     Active Substance: SIMVASTATIN
     Indication: Peripheral arterial occlusive disease
     Dosage: 20 MILLIGRAM, QD
  10. MELPERONE [Concomitant]
     Active Substance: MELPERONE
     Indication: Major depression
     Dosage: 50 MILLIGRAM, QD
  11. LANTUS [Concomitant]
     Active Substance: INSULIN GLARGINE
     Indication: Type 2 diabetes mellitus
     Dosage: 1 DOSAGE FORM, QID
     Route: 058

REACTIONS (5)
  - Loss of consciousness [Recovered/Resolved]
  - Procalcitonin increased [Recovering/Resolving]
  - Product dispensing error [Recovered/Resolved]
  - Wrong product administered [Recovered/Resolved]
  - Product name confusion [Unknown]
